FAERS Safety Report 12497697 (Version 2)
Quarter: 2016Q3

REPORT INFORMATION
  Report Type: Spontaneous
  Country: IT (occurrence: IT)
  Receive Date: 20160625
  Receipt Date: 20160701
  Transmission Date: 20161109
  Serious: Yes (Hospitalization)
  Sender: FDA-Public Use
  Company Number: IT-ACCORD-041746

PATIENT
  Age: 40 Year
  Sex: Male

DRUGS (1)
  1. QUETIAPINE NGX [Suspect]
     Active Substance: QUETIAPINE
     Dosage: 200 MG TABLET X 2
     Route: 048
     Dates: start: 20160424, end: 20160424

REACTIONS (2)
  - Medication error [Recovering/Resolving]
  - Sopor [Recovering/Resolving]

NARRATIVE: CASE EVENT DATE: 20160424
